FAERS Safety Report 4615321-7 (Version None)
Quarter: 2005Q1

REPORT INFORMATION
  Report Type: 
  Country: None (occurrence: None)
  Receive Date: 20050317
  Receipt Date: 20050307
  Transmission Date: 20050727
  Serious: No
  Sender: FDA-Public Use
  Company Number: 2005AP00593

PATIENT
  Age: 53 Year
  Sex: Female

DRUGS (5)
  1. ARIMIDEX [Suspect]
     Indication: BREAST CANCER
     Dates: start: 20041110, end: 20041218
  2. ARIMIDEX [Suspect]
     Indication: PROPHYLAXIS
     Dates: start: 20041110, end: 20041218
  3. ASPIRIN [Concomitant]
  4. DILTIAZEM [Concomitant]
  5. FLUOXETINE [Concomitant]

REACTIONS (4)
  - HYPERKERATOSIS [None]
  - PSORIASIS [None]
  - RASH GENERALISED [None]
  - RASH PUSTULAR [None]
